FAERS Safety Report 5033109-2 (Version None)
Quarter: 2006Q2

REPORT INFORMATION
  Report Type: 
  Country: None (occurrence: None)
  Receive Date: 20060504
  Receipt Date: 20060125
  Transmission Date: 20061013
  Serious: Yes (Other)
  Sender: FDA-Public Use
  Company Number: PHEH2006US01340

PATIENT
  Sex: Female

DRUGS (2)
  1. TEGRETOL [Suspect]
     Indication: EPILEPSY
     Dosage: 400 MG, BID, ORAL
     Route: 048
     Dates: start: 19940101
  2. ASPIRIN TAB [Concomitant]

REACTIONS (3)
  - DYSGEUSIA [None]
  - HYPOTHYROIDISM [None]
  - VENTRICULAR EXTRASYSTOLES [None]
